FAERS Safety Report 6273107-4 (Version None)
Quarter: 2009Q3

REPORT INFORMATION
  Report Type: 
  Country: None (occurrence: None)
  Receive Date: 20090715
  Receipt Date: 20090715
  Transmission Date: 20100115
  Serious: Yes (Life-Threatening)
  Sender: FDA-Public Use
  Company Number: None

PATIENT
  Age: 40 Year
  Sex: Male
  Weight: 104.3273 kg

DRUGS (1)
  1. ENBREL [Suspect]

REACTIONS (3)
  - INFLUENZA LIKE ILLNESS [None]
  - LOCALISED OEDEMA [None]
  - LYMPHOMA [None]
